FAERS Safety Report 4765147-9 (Version None)
Quarter: 2005Q3

REPORT INFORMATION
  Report Type: 
  Country: None (occurrence: None)
  Receive Date: 20050906
  Receipt Date: 20050824
  Transmission Date: 20060218
  Serious: Yes (Hospitalization, Other)
  Sender: FDA-Public Use
  Company Number: 2005113906

PATIENT
  Sex: Female

DRUGS (5)
  1. LIPITOR [Suspect]
     Indication: BLOOD CHOLESTEROL
     Dosage: 10 MG (10 MG, 1 IN 1 D), ORAL
     Route: 048
     Dates: end: 20050807
  2. PRILOSEC [Concomitant]
  3. SYNTHROID [Concomitant]
  4. CELEXA [Concomitant]
  5. TRAZODONE HCL [Concomitant]

REACTIONS (15)
  - ABDOMINAL DISTENSION [None]
  - ASTHENIA [None]
  - BARRETT'S OESOPHAGUS [None]
  - CONSTIPATION [None]
  - DYSKINESIA OESOPHAGEAL [None]
  - DYSPEPSIA [None]
  - FATIGUE [None]
  - FLATULENCE [None]
  - GASTRIC POLYPS [None]
  - HIATUS HERNIA [None]
  - MUSCLE INJURY [None]
  - OESOPHAGEAL HAEMORRHAGE [None]
  - ORAL INTAKE REDUCED [None]
  - RECTAL PROLAPSE [None]
  - WEIGHT DECREASED [None]
